FAERS Safety Report 6987551-0 (Version None)
Quarter: 2010Q3

REPORT INFORMATION
  Report Type: 
  Country: None (occurrence: None)
  Receive Date: 20100916
  Receipt Date: 20100908
  Transmission Date: 20110219
  Serious: Yes (Other)
  Sender: FDA-Public Use
  Company Number: US-PFIZER INC-2010114080

PATIENT
  Age: 72 Year

DRUGS (2)
  1. ZYVOX [Suspect]
     Indication: SKIN INFECTION
  2. VANCOMYCIN [Suspect]

REACTIONS (1)
  - HYPERSENSITIVITY [None]
